FAERS Safety Report 14977173 (Version 2)
Quarter: 2018Q2

REPORT INFORMATION
  Report Type: Spontaneous
  Country: ES (occurrence: ES)
  Receive Date: 20180606
  Receipt Date: 20180621
  Transmission Date: 20180711
  Serious: Yes (Other)
  Sender: FDA-Public Use
  Company Number: ES-BAXTER-2018BAX016072

PATIENT
  Age: 15 Year
  Sex: Male

DRUGS (2)
  1. TISSEEL SOLUCIONES PARA ADHESIVO TISULAR [Suspect]
     Active Substance: APROTININ\CALCIUM CHLORIDE\FIBRINOGEN HUMAN\FACTOR XIII CONCENTRATE (HUMAN)\THROMBIN
     Indication: TISSUE SEALING
     Route: 065
     Dates: start: 20180319
  2. TISSEEL SOLUCIONES PARA ADHESIVO TISULAR [Suspect]
     Active Substance: APROTININ\CALCIUM CHLORIDE\FIBRINOGEN HUMAN\FACTOR XIII CONCENTRATE (HUMAN)\THROMBIN
     Route: 065
     Dates: start: 20180319

REACTIONS (9)
  - Swelling [Unknown]
  - Wound [Unknown]
  - Application site granuloma [Recovered/Resolved]
  - Pyrexia [Recovered/Resolved]
  - Fistula [Unknown]
  - Cerebrospinal fluid leakage [Unknown]
  - Application site reaction [Unknown]
  - Hypersensitivity [Unknown]
  - Extraskeletal ossification [Recovered/Resolved]

NARRATIVE: CASE EVENT DATE: 201805
